FAERS Safety Report 7908450-3 (Version None)
Quarter: 2011Q4

REPORT INFORMATION
  Report Type: 
  Country: None (occurrence: None)
  Receive Date: 20111111
  Receipt Date: 20111031
  Transmission Date: 20120403
  Serious: Yes (Other)
  Sender: FDA-Public Use
  Company Number: US-BAYER-201036040NA

PATIENT
  Age: 33 Year
  Sex: Female
  Weight: 62.585 kg

DRUGS (5)
  1. YAZ [Suspect]
     Indication: CONTRACEPTION
     Dosage: UNK
     Route: 048
     Dates: start: 20061101, end: 20081101
  2. YAZ [Suspect]
     Indication: MENSTRUATION IRREGULAR
  3. NAPROXEN (ALEVE) [Concomitant]
     Route: 048
  4. PRILOSEC [Concomitant]
     Dosage: 10 MG, UNK
     Route: 048
  5. YAZ [Suspect]
     Indication: PREMENSTRUAL SYNDROME
     Dosage: UNK
     Dates: start: 20090201, end: 20091101

REACTIONS (11)
  - DYSPEPSIA [None]
  - CONSTIPATION [None]
  - SCAR [None]
  - CHOLECYSTITIS CHRONIC [None]
  - DEPRESSION [None]
  - BILIARY DYSKINESIA [None]
  - ANXIETY [None]
  - CHOLECYSTECTOMY [None]
  - ABDOMINAL DISTENSION [None]
  - FLATULENCE [None]
  - DIARRHOEA [None]
